FAERS Safety Report 21203417 (Version 5)
Quarter: 2023Q2

REPORT INFORMATION
  Report Type: Spontaneous
  Country: JP (occurrence: JP)
  Receive Date: 20220811
  Receipt Date: 20230404
  Transmission Date: 20230721
  Serious: Yes (Other)
  Sender: FDA-Public Use
  Company Number: JP-ARBOR PHARMACEUTICALS, LLC-JP-2022ARB001742

PATIENT
  Sex: Female

DRUGS (17)
  1. GABAPENTIN ENACARBIL [Suspect]
     Active Substance: GABAPENTIN ENACARBIL
     Indication: Hypoaesthesia
     Dosage: 600 MG, UNKNOWN FREQ.
     Route: 048
     Dates: start: 202110
  2. GABAPENTIN ENACARBIL [Suspect]
     Active Substance: GABAPENTIN ENACARBIL
     Dosage: 300 MG, UNKNOWN FREQ.
     Route: 048
     Dates: start: 2021
  3. GABAPENTIN ENACARBIL [Suspect]
     Active Substance: GABAPENTIN ENACARBIL
     Dosage: 1 TABLET OR 2 TABLETS, UNKNOWN FREQ.
     Route: 048
  4. GABAPENTIN ENACARBIL [Suspect]
     Active Substance: GABAPENTIN ENACARBIL
     Dosage: 600 MG, UNKNOWN FREQ.
     Route: 048
  5. GABAPENTIN ENACARBIL [Suspect]
     Active Substance: GABAPENTIN ENACARBIL
     Dosage: 600 MG, UNKNOWN FREQ.
     Route: 048
     Dates: start: 202205
  6. GABAPENTIN ENACARBIL [Suspect]
     Active Substance: GABAPENTIN ENACARBIL
     Dosage: 300 MG, UNKNOWN FREQ.
     Route: 048
     Dates: start: 20220723
  7. GABAPENTIN ENACARBIL [Suspect]
     Active Substance: GABAPENTIN ENACARBIL
     Dosage: 600 MG, UNKNOWN FREQ.
     Route: 048
     Dates: start: 20220724
  8. GABAPENTIN ENACARBIL [Suspect]
     Active Substance: GABAPENTIN ENACARBIL
     Dosage: 600 MG, UNKNOWN FREQ.
     Route: 048
     Dates: start: 20220806
  9. GABAPENTIN ENACARBIL [Suspect]
     Active Substance: GABAPENTIN ENACARBIL
     Dosage: 300 MG, UNKNOWN FREQ.
     Route: 048
     Dates: start: 20220807
  10. GABAPENTIN ENACARBIL [Suspect]
     Active Substance: GABAPENTIN ENACARBIL
     Dosage: 150 MG, UNKNOWN FREQ.
     Route: 048
     Dates: start: 20221205
  11. GABAPENTIN ENACARBIL [Suspect]
     Active Substance: GABAPENTIN ENACARBIL
     Dosage: UNK UNK, UNKNOWN FREQ.
     Route: 048
  12. GABAPENTIN ENACARBIL [Suspect]
     Active Substance: GABAPENTIN ENACARBIL
     Dosage: UNK UNK, UNKNOWN FREQ.
     Route: 048
  13. GABAPENTIN ENACARBIL [Suspect]
     Active Substance: GABAPENTIN ENACARBIL
     Dosage: 1 TABLET OR 2 TABLETS, UNKNOWN FREQ.
     Route: 048
  14. GABAPENTIN ENACARBIL [Suspect]
     Active Substance: GABAPENTIN ENACARBIL
     Dosage: 300 MG, ONCE DAILY
     Route: 048
     Dates: start: 20230322, end: 20230323
  15. GABAPENTIN ENACARBIL [Suspect]
     Active Substance: GABAPENTIN ENACARBIL
     Dosage: 1 TABLET OR 2 TABLETS, UNKNOWN FREQ.
     Route: 048
  16. ETIZOLAM [Suspect]
     Active Substance: ETIZOLAM
     Indication: Product used for unknown indication
     Dosage: UNK UNK, UNKNOWN FREQ.
     Route: 048
  17. LOXOPROFEN SODIUM [Concomitant]
     Active Substance: LOXOPROFEN SODIUM
     Indication: Product used for unknown indication
     Dosage: UNK
     Route: 048

REACTIONS (48)
  - Bedridden [Unknown]
  - Schizophrenia [Unknown]
  - Gait inability [Not Recovered/Not Resolved]
  - Hypoaesthesia [Unknown]
  - Limb discomfort [Not Recovered/Not Resolved]
  - Middle insomnia [Unknown]
  - Malaise [Unknown]
  - Decreased appetite [Unknown]
  - Physical deconditioning [Unknown]
  - Abdominal discomfort [Unknown]
  - Muscular weakness [Unknown]
  - Hot flush [Unknown]
  - Arthropathy [Not Recovered/Not Resolved]
  - Ear discomfort [Unknown]
  - Tremor [Unknown]
  - Limb discomfort [Unknown]
  - Ear discomfort [Unknown]
  - Pruritus [Unknown]
  - Arthralgia [Unknown]
  - Palpitations [Unknown]
  - Gait disturbance [Unknown]
  - Decreased appetite [Unknown]
  - Gait disturbance [Unknown]
  - Limb discomfort [Unknown]
  - Limb discomfort [Not Recovered/Not Resolved]
  - Limb discomfort [Unknown]
  - Tremor [Unknown]
  - Hypoaesthesia [Unknown]
  - Physical deconditioning [Unknown]
  - Hypoaesthesia [Unknown]
  - Limb discomfort [Unknown]
  - Arthralgia [Not Recovered/Not Resolved]
  - Withdrawal syndrome [Unknown]
  - Depression [Unknown]
  - Somnolence [Unknown]
  - Headache [Unknown]
  - Insomnia [Unknown]
  - Brain fog [Unknown]
  - Dry mouth [Unknown]
  - Nausea [Unknown]
  - Dizziness [Unknown]
  - Dizziness [Unknown]
  - Insomnia [Unknown]
  - Somnolence [Unknown]
  - Intentional product misuse [Unknown]
  - Product use issue [Unknown]
  - Wrong technique in product usage process [Unknown]
  - Drug ineffective [Unknown]

NARRATIVE: CASE EVENT DATE: 20210101
